FAERS Safety Report 17854008 (Version 1)
Quarter: 2020Q2

REPORT INFORMATION
  Report Type: Spontaneous
  Country: DE (occurrence: DE)
  Receive Date: 20200603
  Receipt Date: 20200603
  Transmission Date: 20200714
  Serious: Yes (Hospitalization, Other)
  Sender: FDA-Public Use
  Company Number: DE-AUROBINDO-AUR-APL-2020-026345

PATIENT
  Age: 5 Decade
  Sex: Female

DRUGS (9)
  1. ESCITALOPRAM [Interacting]
     Active Substance: ESCITALOPRAM OXALATE
     Indication: SCHIZOPHRENIA
     Dosage: 10 MILLIGRAM, ONCE A DAY,DAILY
     Route: 065
  2. OLANZAPINE. [Concomitant]
     Active Substance: OLANZAPINE
     Indication: SCHIZOPHRENIA
     Dosage: UNK
     Route: 065
  3. CLOZAPINE. [Interacting]
     Active Substance: CLOZAPINE
     Dosage: 5 MILLIGRAM, ONCE A DAY,DAILY
     Route: 065
  4. RISPERIDONE. [Concomitant]
     Active Substance: RISPERIDONE
     Indication: SCHIZOPHRENIA
     Dosage: UNK
     Route: 065
  5. CLOZAPINE. [Suspect]
     Active Substance: CLOZAPINE
     Indication: SCHIZOPHRENIA
     Dosage: 12 MILLIGRAM, ONCE A DAY,DAILY
     Route: 065
  6. FLUPENTIXOL [Suspect]
     Active Substance: FLUPENTIXOL
     Indication: SCHIZOPHRENIA
     Dosage: 4 MILLIGRAM, ONCE A DAY,DAILY; SCHEDULED FOR 4 WEEKS.
     Route: 065
  7. CARIPRAZINE [Interacting]
     Active Substance: CARIPRAZINE
     Dosage: 5 MILLIGRAM, ONCE A DAY,DAILY
     Route: 065
  8. CARIPRAZINE [Interacting]
     Active Substance: CARIPRAZINE
     Indication: SCHIZOPHRENIA
     Dosage: 1 MILLIGRAM, ONCE A DAY,DAILY
     Route: 065
  9. ARIPIPRAZOLE. [Concomitant]
     Active Substance: ARIPIPRAZOLE
     Indication: SCHIZOPHRENIA
     Dosage: UNK
     Route: 065

REACTIONS (8)
  - Dyskinesia [Unknown]
  - Agitation [Recovered/Resolved]
  - Drug interaction [Recovered/Resolved]
  - Weight increased [Unknown]
  - Parkinsonism [Recovered/Resolved]
  - Akathisia [Unknown]
  - Increased appetite [Unknown]
  - Extrapyramidal disorder [Unknown]
